FAERS Safety Report 16129902 (Version 2)
Quarter: 2019Q2

REPORT INFORMATION
  Report Type: Spontaneous
  Country: IT (occurrence: IT)
  Receive Date: 20190328
  Receipt Date: 20190402
  Transmission Date: 20190711
  Serious: Yes (Other)
  Sender: FDA-Public Use
  Company Number: IT-ALLERGAN-1913418US

PATIENT
  Sex: Female

DRUGS (1)
  1. EXOCIN 0.3% UNGUENTO OFTALMICO [Suspect]
     Active Substance: OFLOXACIN
     Indication: EYE PAIN
     Dosage: 2 DF, PRN
     Route: 003
     Dates: start: 20180419, end: 20180420

REACTIONS (4)
  - Erythema [Recovering/Resolving]
  - Eyelid oedema [Recovering/Resolving]
  - Inappropriate schedule of product administration [Unknown]
  - Swelling face [Recovering/Resolving]

NARRATIVE: CASE EVENT DATE: 20180420
